FAERS Safety Report 23498740 (Version 2)
Quarter: 2024Q1

REPORT INFORMATION
  Report Type: Spontaneous
  Country: US (occurrence: US)
  Receive Date: 20240208
  Receipt Date: 20240312
  Transmission Date: 20240409
  Serious: Yes (Other)
  Sender: FDA-Public Use
  Company Number: US-BRISTOL-MYERS SQUIBB COMPANY-2024-018538

PATIENT
  Age: 47 Year
  Sex: Male

DRUGS (1)
  1. REVLIMID [Suspect]
     Active Substance: LENALIDOMIDE
     Indication: Plasma protein metabolism disorder
     Dosage: DAILY FOR 21 DAYS ON THE 7 DAYS OFF
     Route: 048

REACTIONS (3)
  - POEMS syndrome [Unknown]
  - Off label use [Unknown]
  - Somnolence [Recovered/Resolved]
